FAERS Safety Report 24381893 (Version 1)
Quarter: 2024Q4

REPORT INFORMATION
  Report Type: Spontaneous
  Country: RS (occurrence: RS)
  Receive Date: 20241001
  Receipt Date: 20241001
  Transmission Date: 20250115
  Serious: Yes (Hospitalization)
  Sender: ALKEM
  Company Number: RS-ALKEM LABORATORIES LIMITED-RS-ALKEM-2024-22762

PATIENT
  Age: 31 Year
  Sex: Male

DRUGS (1)
  1. PREGABALIN [Suspect]
     Active Substance: PREGABALIN
     Indication: Product used for unknown indication
     Dosage: 750 MILLIGRAM
     Route: 048

REACTIONS (3)
  - Sinus bradycardia [Recovered/Resolved]
  - Somnolence [Recovered/Resolved]
  - Overdose [Unknown]
